FAERS Safety Report 4731729-3 (Version None)
Quarter: 2005Q3

REPORT INFORMATION
  Report Type: 
  Country: None (occurrence: None)
  Receive Date: 20050725
  Receipt Date: 20041027
  Transmission Date: 20060218
  Serious: Yes (Disabling)
  Sender: FDA-Public Use
  Company Number: WAES 0306USA00859

PATIENT
  Age: 38 Year
  Sex: Male

DRUGS (2)
  1. VIOXX [Suspect]
     Dosage: 25 MG/UNK/PO
     Route: 048
     Dates: start: 20001127
  2. NORTRIPTYLINE HCL [Concomitant]

REACTIONS (3)
  - ADVERSE EVENT [None]
  - BACK DISORDER [None]
  - DEPRESSION [None]
